FAERS Safety Report 6732496-4 (Version None)
Quarter: 2010Q2

REPORT INFORMATION
  Report Type: 
  Country: None (occurrence: None)
  Receive Date: 20100519
  Receipt Date: 20100512
  Transmission Date: 20101027
  Serious: Yes (Death)
  Sender: FDA-Public Use
  Company Number: SE-ELI_LILLY_AND_COMPANY-SE201003002986

PATIENT
  Sex: Male
  Weight: 92 kg

DRUGS (15)
  1. BYETTA [Suspect]
     Indication: TYPE 2 DIABETES MELLITUS
     Dosage: 10 UG, 2/D
     Route: 058
     Dates: start: 20080806, end: 20091215
  2. NASONEX [Concomitant]
     Dosage: 100 UG, 2/D
     Route: 065
  3. NOVORAPID [Concomitant]
     Dosage: 100 E/ML
     Route: 065
  4. INSULATARD [Concomitant]
     Dosage: 100 IE/ML
  5. ACETAMINOPHEN [Concomitant]
     Indication: PAIN
     Dosage: 500 MG, 1-2 TABLETS 1-4 TIMES DAILY
  6. GLYTRIN [Concomitant]
     Indication: ANGINA PECTORIS
     Dosage: 0.4 MG 1-2 DOSES AS NEEDED.
  7. EGAZIL [Concomitant]
     Indication: GASTRITIS
     Dosage: 0.2 MG 1 -2 TIMES DAILY
     Route: 065
  8. IMODIUM [Concomitant]
     Indication: DIARRHOEA
     Dosage: 2 MG 1-4 TIMES DAILY
  9. SIMVASTATIN [Concomitant]
     Indication: HYPERCHOLESTEROLAEMIA
     Dosage: 40 MG, DAILY (1/D)
  10. NEXIUM [Concomitant]
     Dosage: 40 MG, DAILY (1/D)
  11. TROMBYL [Concomitant]
     Indication: ANTICOAGULANT THERAPY
     Dosage: 75 MG, DAILY (1/D)
     Route: 065
  12. IMDUR [Concomitant]
     Indication: ANGINA PECTORIS
     Dosage: 30 MG, DAILY (1/D)
  13. SELOKEEN ZOC [Concomitant]
     Indication: BLOOD PRESSURE
     Dosage: 50 MG, DAILY (1/D)
     Route: 065
  14. NORMORIX [Concomitant]
     Indication: BLOOD PRESSURE
     Dosage: 1 D/F, DAILY (1/D)
  15. AMLODIPIN ACTAVIS [Concomitant]
     Indication: BLOOD PRESSURE
     Dosage: 5 MG, DAILY (1/D)

REACTIONS (3)
  - ABDOMINAL DISCOMFORT [None]
  - GLYCOSYLATED HAEMOGLOBIN INCREASED [None]
  - PANCREATIC CARCINOMA [None]
